FAERS Safety Report 9886704 (Version 1)
Quarter: 2014Q1

REPORT INFORMATION
  Report Type: Spontaneous
  Country: US (occurrence: US)
  Receive Date: 20140210
  Receipt Date: 20140210
  Transmission Date: 20141002
  Serious: No
  Sender: FDA-Public Use
  Company Number: US-PFIZER INC-2014033517

PATIENT
  Sex: Female

DRUGS (4)
  1. ZOLOFT [Suspect]
     Indication: ANXIETY
     Dosage: 12.5 MG, 1X/DAY
  2. ZOLOFT [Suspect]
     Indication: PANIC ATTACK
     Dosage: 25 MG, 1X/DAY
  3. ZOLOFT [Suspect]
     Dosage: 37.5 MG, 1X/DAY
  4. ZOLOFT [Suspect]
     Dosage: 25 MG, 1X/DAY

REACTIONS (1)
  - Emotional disorder [Unknown]
